FAERS Safety Report 6756820-1 (Version None)
Quarter: 2010Q2

REPORT INFORMATION
  Report Type: 
  Country: None (occurrence: None)
  Receive Date: 20100604
  Receipt Date: 20100524
  Transmission Date: 20101027
  Serious: Yes (Hospitalization, Disabling)
  Sender: FDA-Public Use
  Company Number: US-JNJFOC-20100406831

PATIENT
  Age: 48 Year
  Sex: Female

DRUGS (7)
  1. INVEGA SUSTENNA [Suspect]
     Indication: SCHIZOPHRENIA
     Route: 030
  2. INVEGA SUSTENNA [Suspect]
     Route: 030
  3. INVEGA [Suspect]
     Indication: SCHIZOPHRENIA
     Route: 048
  4. INVEGA [Suspect]
     Route: 048
  5. DEPAKOTE [Concomitant]
     Indication: DRUG USE FOR UNKNOWN INDICATION
  6. COGENTIN [Concomitant]
     Indication: DRUG USE FOR UNKNOWN INDICATION
  7. VALIUM [Concomitant]
     Indication: DRUG USE FOR UNKNOWN INDICATION

REACTIONS (6)
  - DELIRIUM [None]
  - DYSARTHRIA [None]
  - DYSTONIA [None]
  - LETHARGY [None]
  - OVERDOSE [None]
  - UNRESPONSIVE TO STIMULI [None]
